FAERS Safety Report 19623216 (Version 1)
Quarter: 2021Q3

REPORT INFORMATION
  Report Type: Spontaneous
  Country: CH (occurrence: CH)
  Receive Date: 20210729
  Receipt Date: 20210729
  Transmission Date: 20211014
  Serious: Yes (Other)
  Sender: FDA-Public Use
  Company Number: CH-SUN PHARMACEUTICAL INDUSTRIES LTD-2021R1-305862

PATIENT
  Age: 40 Year
  Sex: Male

DRUGS (1)
  1. DOXORUBICIN [Suspect]
     Active Substance: DOXORUBICIN
     Indication: HODGKIN^S DISEASE
     Dosage: UNK
     Route: 065

REACTIONS (1)
  - Cardiotoxicity [Unknown]
